FAERS Safety Report 20948988 (Version 2)
Quarter: 2022Q2

REPORT INFORMATION
  Report Type: Spontaneous
  Country: CN (occurrence: None)
  Receive Date: 20220613
  Receipt Date: 20220617
  Transmission Date: 20220721
  Serious: Yes (Hospitalization, Other)
  Sender: FDA-Public Use
  Company Number: 2022A214530

PATIENT
  Age: 76 Year
  Sex: Male
  Weight: 50 kg

DRUGS (3)
  1. IMFINZI [Suspect]
     Active Substance: DURVALUMAB
     Indication: Non-small cell lung cancer stage III
     Dosage: 500.0MG EVERY CYCLE
     Route: 042
     Dates: start: 20211210, end: 20211231
  2. IMFINZI [Suspect]
     Active Substance: DURVALUMAB
     Indication: Non-small cell lung cancer stage III
     Dosage: 500.0MG EVERY CYCLE
     Route: 042
     Dates: start: 20211210, end: 2022
  3. CAMRELIZUMAB [Concomitant]
     Active Substance: CAMRELIZUMAB
     Route: 042
     Dates: start: 202111

REACTIONS (1)
  - Cardiac failure [Recovering/Resolving]

NARRATIVE: CASE EVENT DATE: 20220101
